FAERS Safety Report 16884349 (Version 1)
Quarter: 2019Q4

REPORT INFORMATION
  Report Type: Spontaneous
  Country: BG (occurrence: BG)
  Receive Date: 20191004
  Receipt Date: 20191004
  Transmission Date: 20200122
  Serious: Yes (Hospitalization)
  Sender: FDA-Public Use
  Company Number: BG-MYLANLABS-2019M1091119

PATIENT
  Age: 80 Year
  Sex: Male

DRUGS (3)
  1. ACETYLSALICYLIC ACID [Suspect]
     Active Substance: ASPIRIN
     Indication: PERIPHERAL ARTERY THROMBOSIS
     Dosage: DOSE FREQUENCY:- 0-0-1
     Route: 065
  2. BISOPROLOL [Suspect]
     Active Substance: BISOPROLOL
     Indication: HYPERTENSION
     Dosage: DOSE FREQUENCY:- 0-0-1
     Route: 065
  3. CILOSTAZOL. [Concomitant]
     Active Substance: CILOSTAZOL
     Indication: PERIPHERAL ARTERY THROMBOSIS
     Dosage: DOSE FREQUENCY:- 1-0-1
     Route: 065

REACTIONS (3)
  - Dermatosis [Recovering/Resolving]
  - Eczema [Recovering/Resolving]
  - Chronic pigmented purpura [Recovering/Resolving]
